FAERS Safety Report 7802987-3 (Version None)
Quarter: 2011Q4

REPORT INFORMATION
  Report Type: 
  Country: None (occurrence: None)
  Receive Date: 20111005
  Receipt Date: 20110921
  Transmission Date: 20120403
  Serious: Yes (Life-Threatening, Hospitalization)
  Sender: FDA-Public Use
  Company Number: 2011MA014445

PATIENT
  Age: 22 Year
  Sex: Female

DRUGS (4)
  1. RESPERDAL (NO PREF. NAME) [Suspect]
     Indication: SUICIDE ATTEMPT
     Dosage: PO
     Route: 048
     Dates: start: 20110731, end: 20110731
  2. MIRTAZAPINE [Suspect]
     Indication: SUICIDE ATTEMPT
  3. MIRTAZAPINE [Suspect]
     Indication: SUICIDE ATTEMPT
     Dosage: PO
     Route: 048
     Dates: start: 20110731, end: 20110731
  4. RISPERIDONE [Suspect]
     Indication: SUICIDE ATTEMPT
     Dosage: PO
     Route: 048
     Dates: start: 20110731, end: 20110731

REACTIONS (5)
  - SUICIDE ATTEMPT [None]
  - FATIGUE [None]
  - DRUG ABUSE [None]
  - POISONING [None]
  - SELF-MEDICATION [None]
